FAERS Safety Report 4509222-2 (Version None)
Quarter: 2004Q4

REPORT INFORMATION
  Report Type: 
  Country: None (occurrence: None)
  Receive Date: 20041123
  Receipt Date: 20041117
  Transmission Date: 20050328
  Serious: Yes (Disabling, Other)
  Sender: FDA-Public Use
  Company Number: GB-MERCK-0411GBR00165

PATIENT
  Age: 72 Year
  Sex: Male

DRUGS (6)
  1. ZOCOR [Suspect]
     Indication: BLOOD CHOLESTEROL INCREASED
     Route: 048
     Dates: start: 20020601, end: 20041026
  2. BENDROFLUMETHIAZIDE [Concomitant]
     Route: 048
  3. CANDESARTAN [Concomitant]
     Route: 048
  4. ROSIGLITAZONE MALEATE [Concomitant]
     Route: 048
  5. TOLBUTAMIDE [Concomitant]
     Route: 048
  6. METFORMIN [Concomitant]
     Route: 048

REACTIONS (2)
  - AMNESIA [None]
  - CONFUSIONAL STATE [None]
